FAERS Safety Report 16228146 (Version 2)
Quarter: 2021Q3

REPORT INFORMATION
  Report Type: Spontaneous
  Country: US (occurrence: US)
  Receive Date: 20190423
  Receipt Date: 20210820
  Transmission Date: 20211014
  Serious: Yes (Life-Threatening, Hospitalization, Other)
  Sender: FDA-Public Use
  Company Number: US-NAPPMUNDI-USA-2019-0146618

PATIENT
  Sex: Male

DRUGS (3)
  1. BUPRENORPHINE (SIMILAR TO NDA 21?306) [Suspect]
     Active Substance: BUPRENORPHINE
     Indication: PRODUCT USED FOR UNKNOWN INDICATION
     Dosage: UNKNOWN (THREE TO FOUR TIMES A DAY)
     Route: 042
  2. HEROIN [Suspect]
     Active Substance: DIAMORPHINE
     Indication: PRODUCT USED FOR UNKNOWN INDICATION
     Dosage: UNKNOWN
     Route: 042
  3. OXYCONTIN [Suspect]
     Active Substance: OXYCODONE HYDROCHLORIDE
     Indication: PAIN
     Dosage: 40 MG, TID
     Route: 048
     Dates: start: 1993, end: 1994

REACTIONS (8)
  - Unevaluable event [Recovered/Resolved]
  - Loss of consciousness [Recovered/Resolved]
  - Overdose [Unknown]
  - Off label use [Unknown]
  - Drug withdrawal syndrome [Recovered/Resolved]
  - Apnoea [Recovered/Resolved]
  - Drug dependence [Unknown]
  - Cardiac arrest [Recovered/Resolved]

NARRATIVE: CASE EVENT DATE: 1993
